FAERS Safety Report 19559246 (Version 1)
Quarter: 2021Q3

REPORT INFORMATION
  Report Type: Spontaneous
  Country: US (occurrence: US)
  Receive Date: 20210714
  Receipt Date: 20210714
  Transmission Date: 20211014
  Serious: No
  Sender: FDA-Public Use
  Company Number: US-SK LIFE SCIENCE, INC-SKPVG-2020-000400

PATIENT

DRUGS (25)
  1. TOPAMAX [Suspect]
     Active Substance: TOPIRAMATE
     Dosage: 50 MG IN MORNING AND 100 MG NIGHT (WEEK SIX)
     Route: 065
     Dates: start: 20201019
  2. XCOPRI [Suspect]
     Active Substance: CENOBAMATE
     Dosage: 25 MILLIGRAM, QD
     Route: 048
  3. LAMICTAL [Suspect]
     Active Substance: LAMOTRIGINE
     Indication: SEIZURE
     Dosage: 400 MG AT BED TIME AND 300 MG DAILY MORNING
     Route: 065
  4. FAMOTIDINE. [Concomitant]
     Active Substance: FAMOTIDINE
     Indication: PRODUCT USED FOR UNKNOWN INDICATION
     Dosage: 20 MILLIGRAM, QD
     Route: 065
  5. CLONIDINE. [Concomitant]
     Active Substance: CLONIDINE
     Indication: SOMNOLENCE
     Dosage: 0.1 MILLIGRAM, HS
     Route: 065
  6. XCOPRI [Suspect]
     Active Substance: CENOBAMATE
     Dosage: 200 MILLIGRAM
     Route: 048
     Dates: start: 20201122
  7. TOPAMAX [Suspect]
     Active Substance: TOPIRAMATE
     Dosage: 50 MG IN MORNING AND 100 MG NIGHT (WEEK FIVE)
     Route: 065
     Dates: start: 20201012
  8. DEPO?A [Concomitant]
     Indication: PRODUCT USED FOR UNKNOWN INDICATION
     Dosage: 150 MILLIGRAM, Q3MO INJECTION
     Route: 050
  9. XCOPRI [Suspect]
     Active Substance: CENOBAMATE
     Indication: SEIZURE
     Dosage: 12.5 MILLIGRAM, QD, 1 TABLET
     Route: 048
     Dates: start: 20200913
  10. TOPAMAX [Suspect]
     Active Substance: TOPIRAMATE
     Dosage: 50 MILLIGRAM, BID (WEEK 7)
     Route: 065
     Dates: start: 20201026
  11. TOPAMAX [Suspect]
     Active Substance: TOPIRAMATE
     Dosage: 50 MILLIGRAM AT BED TIME ONLY (WEEK 9)
     Route: 065
     Dates: start: 20201109
  12. LAMICTAL [Suspect]
     Active Substance: LAMOTRIGINE
     Dosage: 200 MG AT BEDTIME AND 1500 MILLIGRAM. AM
     Route: 065
  13. ZIRTEC [Concomitant]
     Active Substance: CETIRIZINE HYDROCHLORIDE
     Indication: PRODUCT USED FOR UNKNOWN INDICATION
     Dosage: 10 MILLIGRAM, BID
     Route: 065
  14. TOPAMAX [Suspect]
     Active Substance: TOPIRAMATE
     Indication: SEIZURE
     Dosage: 100 MILLIGRAM, BID
     Route: 065
  15. TOPAMAX [Suspect]
     Active Substance: TOPIRAMATE
     Dosage: 50 MILLIGRAM, BID (WEEK 8)
     Route: 065
     Dates: start: 20201102
  16. KLONOPIN [Suspect]
     Active Substance: CLONAZEPAM
     Indication: SEIZURE
  17. LAMICTAL [Suspect]
     Active Substance: LAMOTRIGINE
     Dosage: 100 MG (2 TABLETS AT BEDTIME AND 1 TABLET AT AM)
     Route: 065
  18. PEPCID                             /00305201/ [Concomitant]
     Active Substance: ALUMINUM HYDROXIDE\MAGNESIUM CARBONATE
     Indication: PRODUCT USED FOR UNKNOWN INDICATION
     Dosage: 40 MILLIGRAM, QAM
     Route: 065
  19. XCOPRI [Suspect]
     Active Substance: CENOBAMATE
     Dosage: 100 MILLIGRAM, QD
     Route: 048
     Dates: start: 2020
  20. XCOPRI [Suspect]
     Active Substance: CENOBAMATE
     Dosage: 150 MILLIGRAM, QD
     Route: 048
     Dates: start: 2020
  21. BRIVIACT [Suspect]
     Active Substance: BRIVARACETAM
     Indication: SEIZURE
     Dosage: 100 MILLIGRAM, BID
     Route: 065
  22. TOPAMAX [Suspect]
     Active Substance: TOPIRAMATE
     Dosage: 50 MILLIGRAM AT BED TIME ONLY (WEEK 10)
     Route: 065
     Dates: start: 20201116
  23. LINZESS [Concomitant]
     Active Substance: LINACLOTIDE
     Indication: PRODUCT USED FOR UNKNOWN INDICATION
     Dosage: 145 MICROGRAM, QD, QAM
     Route: 065
  24. LEVOTHYROXINE. [Concomitant]
     Active Substance: LEVOTHYROXINE
     Indication: PRODUCT USED FOR UNKNOWN INDICATION
     Dosage: 0.1 MILLIGRAM, EVERY MORNING
     Route: 065
  25. DIASTAT                            /00017001/ [Concomitant]
     Indication: SEIZURE CLUSTER
     Dosage: 20 MILLIGRAM, PRN
     Route: 054

REACTIONS (8)
  - Seizure [Recovered/Resolved]
  - Fall [Not Recovered/Not Resolved]
  - Decreased interest [Not Recovered/Not Resolved]
  - Contusion [Not Recovered/Not Resolved]
  - Gait disturbance [Not Recovered/Not Resolved]
  - Product dose omission issue [Unknown]
  - Lethargy [Not Recovered/Not Resolved]
  - Balance disorder [Not Recovered/Not Resolved]

NARRATIVE: CASE EVENT DATE: 2020
